FAERS Safety Report 14763449 (Version 1)
Quarter: 2018Q2

REPORT INFORMATION
  Report Type: Spontaneous
  Country: FR (occurrence: FR)
  Receive Date: 20180416
  Receipt Date: 20180416
  Transmission Date: 20180711
  Serious: Yes (Disabling, Other)
  Sender: FDA-Public Use
  Company Number: FR-MYLANLABS-2018M1021139

PATIENT
  Age: 46 Year
  Sex: Female

DRUGS (1)
  1. MACROGOL MYLAN [Suspect]
     Active Substance: POLYETHYLENE GLYCOL 4000
     Indication: PRODUCT USED FOR UNKNOWN INDICATION
     Dosage: 3 DF, QD
     Dates: start: 201710

REACTIONS (6)
  - Pain [Not Recovered/Not Resolved]
  - Urinary tract infection [Not Recovered/Not Resolved]
  - Maternal exposure during pregnancy [Recovered/Resolved]
  - Dysuria [Not Recovered/Not Resolved]
  - Joint swelling [Not Recovered/Not Resolved]
  - Arrested labour [Not Recovered/Not Resolved]
